FAERS Safety Report 17673207 (Version 2)
Quarter: 2020Q2

REPORT INFORMATION
  Report Type: Spontaneous
  Country: CN (occurrence: CN)
  Receive Date: 20200415
  Receipt Date: 20200418
  Transmission Date: 20200713
  Serious: Yes (Hospitalization, Other)
  Sender: FDA-Public Use
  Company Number: CN-009507513-2004CHN003578

PATIENT

DRUGS (1)
  1. JANUVIA [Suspect]
     Active Substance: SITAGLIPTIN PHOSPHATE
     Indication: DIABETES MELLITUS
     Dosage: THREE TIMES A DAY (TID)
     Route: 048
     Dates: start: 20181022

REACTIONS (6)
  - Haemorrhage [Unknown]
  - Platelet count decreased [Unknown]
  - Inappropriate schedule of product administration [Unknown]
  - Drug hypersensitivity [Unknown]
  - Discomfort [Unknown]
  - Product prescribing error [Unknown]

NARRATIVE: CASE EVENT DATE: 20181022
